FAERS Safety Report 8258105-3 (Version None)
Quarter: 2012Q2

REPORT INFORMATION
  Report Type: 
  Country: None (occurrence: None)
  Receive Date: 20120404
  Receipt Date: 20120330
  Transmission Date: 20120825
  Serious: Yes (Death, Life-Threatening)
  Sender: FDA-Public Use
  Company Number: FR-SANOFI-AVENTIS-2012SA022130

PATIENT
  Age: 96 Year
  Sex: Male

DRUGS (11)
  1. COLCHICINE [Concomitant]
     Dosage: 1 TABLET ON 07-FEB-2012, 3 TABLETS ON 08-FEB, 2 TABLETS ON 09-FEB AND ON 10-FEB THEN 1 TABLET DAILY
     Dates: start: 20120207, end: 20120213
  2. GENTAMICIN [Concomitant]
     Dates: end: 20120207
  3. LASIX [Interacting]
     Dosage: STRENGTH; 20 MG
     Route: 048
     Dates: end: 20120213
  4. RAMIPRIL [Interacting]
     Dosage: STRENGTH; 2.5 MG
     Route: 048
     Dates: start: 20120210, end: 20120213
  5. ALFUZOSIN HCL [Concomitant]
     Dates: end: 20120213
  6. AVODART [Concomitant]
     Dates: end: 20120213
  7. TRAMADOL HCL [Concomitant]
     Dates: end: 20120213
  8. BISOPROLOL FUMARATE [Interacting]
     Dosage: STRENGTH; 1.25 MG
     Route: 048
     Dates: start: 20120209, end: 20120213
  9. OLMESARTAN MEDOXOMIL [Suspect]
     Dosage: STRENGTH; 10 MG
     Route: 048
     Dates: end: 20120213
  10. OXACILLIN [Concomitant]
     Dates: end: 20120207
  11. LOVENOX [Concomitant]
     Dates: end: 20120213

REACTIONS (3)
  - DRUG INTERACTION [None]
  - RENAL FAILURE ACUTE [None]
  - HYPOTENSION [None]
